FAERS Safety Report 24962729 (Version 1)
Quarter: 2025Q1

REPORT INFORMATION
  Report Type: Spontaneous
  Country: CO (occurrence: CO)
  Receive Date: 20250212
  Receipt Date: 20250212
  Transmission Date: 20250409
  Serious: Yes (Other)
  Sender: AMGEN
  Company Number: CO-AMGEN-COLSP2025024896

PATIENT

DRUGS (1)
  1. ADALIMUMAB [Suspect]
     Active Substance: ADALIMUMAB
     Indication: Colitis ulcerative
     Route: 065

REACTIONS (4)
  - Gastrointestinal stenosis [Unknown]
  - Gastrointestinal adenocarcinoma [Unknown]
  - Gastrointestinal dysplasia [Unknown]
  - Gastrointestinal polyp [Unknown]
